FAERS Safety Report 7434264-7 (Version None)
Quarter: 2011Q2

REPORT INFORMATION
  Report Type: 
  Country: None (occurrence: None)
  Receive Date: 20110425
  Receipt Date: 20110420
  Transmission Date: 20111010
  Serious: No
  Sender: FDA-Public Use
  Company Number: US-PFIZER INC-2011074140

PATIENT
  Sex: Female

DRUGS (1)
  1. VERAPAMIL HCL [Suspect]
     Indication: CLUSTER HEADACHE
     Dosage: 180 MG, 1X/DAY (EVERY NIGHT AT BED TIME)

REACTIONS (1)
  - DRUG INEFFECTIVE [None]
